FAERS Safety Report 4396480-0 (Version None)
Quarter: 2004Q2

REPORT INFORMATION
  Report Type: 
  Country: None (occurrence: None)
  Receive Date: 20040621
  Receipt Date: 20030618
  Transmission Date: 20050107
  Serious: Yes (Death)
  Sender: FDA-Public Use
  Company Number: USA-2003-0007038

PATIENT
  Age: 26 Year
  Sex: Male
  Weight: 71.2 kg

DRUGS (10)
  1. OXYCONTIN [Suspect]
     Dosage: ORAL
     Route: 048
  2. MORPHINE SULFATE [Suspect]
  3. HYDROCODONE BITARTRATE [Suspect]
  4. PHENOBARBITAL TAB [Suspect]
  5. DIAZEPAM [Suspect]
  6. CODEINE (CODEINE) [Suspect]
  7. METHADONE HCL [Suspect]
  8. CAFFEINE (CAFFEINE) [Suspect]
  9. MEPHOBARBITAL (METHYLPHENOBARBITAL) [Suspect]
  10. NICOTINE [Suspect]

REACTIONS (2)
  - ACCIDENTAL OVERDOSE [None]
  - MULTIPLE DRUG OVERDOSE [None]
